FAERS Safety Report 5134570-5 (Version None)
Quarter: 2006Q4

REPORT INFORMATION
  Report Type: 
  Country: None (occurrence: None)
  Receive Date: 20061019
  Receipt Date: 20061010
  Transmission Date: 20070319
  Serious: Yes (Other)
  Sender: FDA-Public Use
  Company Number: GXKR2006US06427

PATIENT
  Age: 80 Year
  Sex: Male

DRUGS (6)
  1. HEPARIN [Suspect]
     Indication: THROMBOSIS PROPHYLAXIS
     Dosage: 40 MG, INJECTION NOS
  2. KETOROLAC (NGX) (KETOROLAC) [Suspect]
     Indication: PAIN
     Dosage: 15 MG, INTRAVENOUS
     Route: 042
  3. FENTANYL [Concomitant]
  4. BUPIVANCAINE (BUPIVANCAINE) [Concomitant]
  5. ROPIVACINE (ROPIVACINE) [Concomitant]
  6. MORPHINE [Concomitant]

REACTIONS (4)
  - ANAESTHETIC COMPLICATION [None]
  - BACK PAIN [None]
  - EXTRADURAL HAEMATOMA [None]
  - THERAPY NON-RESPONDER [None]
